FAERS Safety Report 17108957 (Version 1)
Quarter: 2019Q4

REPORT INFORMATION
  Report Type: Spontaneous
  Country: US (occurrence: US)
  Receive Date: 20191203
  Receipt Date: 20191203
  Transmission Date: 20200122
  Serious: No
  Sender: FDA-Public Use
  Company Number: US-PERRIGO-19US009122

PATIENT
  Age: 75 Year
  Sex: Male
  Weight: 70.3 kg

DRUGS (11)
  1. BACITRACIN. [Suspect]
     Active Substance: BACITRACIN
     Dosage: LESS THAN A PEA SIZE, TID
     Route: 047
     Dates: start: 20190510, end: 20190527
  2. DORZOLAMIDE W/TIMOLOL [Concomitant]
     Active Substance: DORZOLAMIDE HYDROCHLORIDE\TIMOLOL MALEATE
     Indication: GLAUCOMA
     Dosage: UNK
     Route: 047
  3. CARBIDOPA LEVODOPA [Concomitant]
     Active Substance: CARBIDOPA\LEVODOPA
     Indication: PARKINSON^S DISEASE
     Dosage: UNK
     Route: 065
     Dates: start: 2016
  4. AMANTADINE                         /00055902/ [Concomitant]
     Active Substance: AMANTADINE
     Indication: PARKINSON^S DISEASE
     Dosage: UNK
     Route: 065
     Dates: start: 2016
  5. FINASTERIDE. [Concomitant]
     Active Substance: FINASTERIDE
     Indication: PROSTATOMEGALY
     Dosage: UNK
     Route: 065
     Dates: start: 2018
  6. BACITRACIN. [Suspect]
     Active Substance: BACITRACIN
     Dosage: LESS THAN A PEA SIZE, TID
     Route: 047
     Dates: start: 20190510, end: 20190527
  7. NEOMYCIN AND POLYMYXIN B SULF + DEXAMETH [Suspect]
     Active Substance: DEXAMETHASONE\NEOMYCIN SULFATE\POLYMYXIN B SULFATE
     Indication: INFECTION PROPHYLAXIS
     Dosage: LESS THAN A PEA SIZE, QID
     Route: 047
     Dates: start: 20190426, end: 20190501
  8. LATANOPROST. [Concomitant]
     Active Substance: LATANOPROST
     Indication: GLAUCOMA
     Dosage: UNK
     Route: 047
  9. BACITRACIN. [Suspect]
     Active Substance: BACITRACIN
     Indication: INFECTION PROPHYLAXIS
     Dosage: LESS THAN A PEA SIZE, TID
     Route: 047
     Dates: start: 20190510, end: 20190527
  10. SERTRALINE [Concomitant]
     Active Substance: SERTRALINE HYDROCHLORIDE
     Indication: PARKINSON^S DISEASE
     Dosage: UNK
     Route: 065
     Dates: start: 2016
  11. REFRESH                            /01282201/ [Concomitant]
     Indication: DRY EYE
     Dosage: UNK
     Route: 047
     Dates: start: 20190725

REACTIONS (7)
  - Eye pain [Recovered/Resolved]
  - Vision blurred [Recovered/Resolved]
  - Eye irritation [Recovered/Resolved]
  - Eyelid oedema [Recovered/Resolved]
  - Ocular hyperaemia [Recovered/Resolved]
  - Eye discharge [Recovered/Resolved]
  - Erythema of eyelid [Recovered/Resolved]

NARRATIVE: CASE EVENT DATE: 20190425
